FAERS Safety Report 19199729 (Version 3)
Quarter: 2021Q2

REPORT INFORMATION
  Report Type: Report from Study
  Country: None (occurrence: US)
  Receive Date: 20210429
  Receipt Date: 20210524
  Transmission Date: 20210717
  Serious: Yes (Hospitalization, Other)
  Sender: FDA-Public Use
  Company Number: US-ABBVIE-21K-163-3880100-00

PATIENT
  Age: 41 Year
  Sex: Male
  Weight: 78.09 kg

DRUGS (6)
  1. GENERIC VALPROIC ACID [Suspect]
     Active Substance: VALPROIC ACID
     Indication: SEIZURE
     Route: 065
     Dates: start: 2001
  2. DEPAKENE [Suspect]
     Active Substance: VALPROIC ACID
     Indication: SEIZURE
     Route: 050
     Dates: start: 2006, end: 2019
  3. GENERIC VALPROIC ACID [Suspect]
     Active Substance: VALPROIC ACID
     Route: 065
     Dates: start: 2006
  4. GENERIC VALPROIC ACID [Suspect]
     Active Substance: VALPROIC ACID
     Route: 065
     Dates: start: 202104
  5. BANZEL [Suspect]
     Active Substance: RUFINAMIDE
     Indication: PRODUCT USED FOR UNKNOWN INDICATION
     Route: 065
  6. DEPAKOTE [Suspect]
     Active Substance: DIVALPROEX SODIUM
     Indication: SEIZURE
     Route: 053

REACTIONS (21)
  - Urticaria [Recovered/Resolved]
  - Alopecia [Recovered/Resolved]
  - Hypophagia [Unknown]
  - Pyrexia [Not Recovered/Not Resolved]
  - Product odour abnormal [Unknown]
  - Rash [Recovered/Resolved]
  - Seizure [Not Recovered/Not Resolved]
  - Product taste abnormal [Unknown]
  - Skin discolouration [Recovered/Resolved]
  - Pain [Not Recovered/Not Resolved]
  - Traumatic lung injury [Not Recovered/Not Resolved]
  - Weight decreased [Unknown]
  - Illness [Recovered/Resolved]
  - Acne [Not Recovered/Not Resolved]
  - Device issue [Unknown]
  - Dyspnoea [Recovered/Resolved]
  - Cough [Not Recovered/Not Resolved]
  - Pneumonia [Recovered/Resolved]
  - Drug ineffective [Unknown]
  - Gastrooesophageal reflux disease [Recovered/Resolved]
  - Vomiting [Recovered/Resolved]

NARRATIVE: CASE EVENT DATE: 2006
